FAERS Safety Report 22114366 (Version 2)
Quarter: 2023Q4

REPORT INFORMATION
  Report Type: Spontaneous
  Country: US (occurrence: US)
  Receive Date: 20230320
  Receipt Date: 20231215
  Transmission Date: 20240110
  Serious: No
  Sender: FDA-Public Use
  Company Number: US-BIOGEN-2023BI01194267

PATIENT
  Sex: Female

DRUGS (1)
  1. VUMERITY [Suspect]
     Active Substance: DIROXIMEL FUMARATE
     Indication: Multiple sclerosis
     Route: 050
     Dates: start: 20210418

REACTIONS (4)
  - Multiple sclerosis relapse [Not Recovered/Not Resolved]
  - Head injury [Not Recovered/Not Resolved]
  - Face injury [Unknown]
  - Fall [Recovered/Resolved]
